FAERS Safety Report 17892193 (Version 1)
Quarter: 2020Q2

REPORT INFORMATION
  Report Type: Spontaneous
  Country: GB (occurrence: GB)
  Receive Date: 20200613
  Receipt Date: 20200613
  Transmission Date: 20200714
  Serious: Yes (Hospitalization, Other)
  Sender: FDA-Public Use
  Company Number: GB-AUROBINDO-AUR-APL-2020-028395

PATIENT
  Age: 13 Year
  Sex: Female

DRUGS (1)
  1. TRANEXAMIC ACID SOLUTION FOR INJECTION [Suspect]
     Active Substance: TRANEXAMIC ACID
     Indication: CRANIOSYNOSTOSIS
     Dosage: 10 MILLIGRAM/KILOGRAM, INFUSED AT A RATE OF
     Route: 040

REACTIONS (2)
  - Off label use [Unknown]
  - Retinal artery occlusion [Not Recovered/Not Resolved]
